FAERS Safety Report 10377469 (Version 1)
Quarter: 2014Q3

REPORT INFORMATION
  Report Type: Spontaneous
  Country: DK (occurrence: DK)
  Receive Date: 20140812
  Receipt Date: 20140812
  Transmission Date: 20150326
  Serious: Yes (Hospitalization)
  Sender: FDA-Public Use
  Company Number: DK-ORION CORPORATION ORION PHARMA-14_00000936

PATIENT
  Age: 80 Year
  Sex: Female

DRUGS (7)
  1. ATACAND [Concomitant]
     Active Substance: CANDESARTAN CILEXETIL
     Route: 065
  2. CLOPIDOGREL [Concomitant]
     Active Substance: CLOPIDOGREL BISULFATE
     Route: 065
  3. ALDACTONE [Suspect]
     Active Substance: SPIRONOLACTONE
     Indication: OEDEMA
     Dosage: STRENGTH: 25 MG
     Route: 048
     Dates: start: 20140503, end: 20140606
  4. METOPROLOL TARTRATE. [Concomitant]
     Active Substance: METOPROLOL TARTRATE
     Route: 065
  5. ALENDRONATE [Concomitant]
     Active Substance: ALENDRONATE SODIUM
     Route: 065
  6. CALCIUM + VITAMIN D3 [Concomitant]
     Route: 065
  7. NITROFURANTOIN. [Concomitant]
     Active Substance: NITROFURANTOIN
     Route: 065

REACTIONS (3)
  - Dizziness [Recovering/Resolving]
  - Pneumonia [Recovering/Resolving]
  - Blood sodium decreased [Recovering/Resolving]

NARRATIVE: CASE EVENT DATE: 20140504
